FAERS Safety Report 9290294 (Version 2)
Quarter: 2013Q2

REPORT INFORMATION
  Report Type: Spontaneous
  Country: JP (occurrence: JP)
  Receive Date: 20130515
  Receipt Date: 20130528
  Transmission Date: 20140414
  Serious: Yes (Death, Hospitalization)
  Sender: FDA-Public Use
  Company Number: JP-JNJFOC-20130501505

PATIENT
  Age: 80 Year
  Sex: Female
  Weight: 43 kg

DRUGS (30)
  1. RISPERDAL [Suspect]
     Indication: INSOMNIA
     Dosage: FOR INTERNAL USE
     Route: 048
  2. VELCADE [Suspect]
     Indication: PLASMA CELL MYELOMA
     Route: 058
     Dates: start: 20130502
  3. VELCADE [Suspect]
     Indication: PLASMA CELL MYELOMA
     Route: 058
     Dates: start: 20130404, end: 20130404
  4. VELCADE [Suspect]
     Indication: PLASMA CELL MYELOMA
     Route: 058
     Dates: start: 20130401, end: 20130401
  5. VELCADE [Suspect]
     Indication: PLASMA CELL MYELOMA
     Route: 058
     Dates: start: 20130411, end: 20130411
  6. VELCADE [Suspect]
     Indication: PLASMA CELL MYELOMA
     Route: 058
     Dates: start: 20130408, end: 20130408
  7. TABALUMAB [Suspect]
     Indication: PLASMA CELL MYELOMA
     Route: 041
     Dates: start: 20130401, end: 20130401
  8. DEXAMETHASONE [Suspect]
     Indication: PLASMA CELL MYELOMA
     Route: 048
     Dates: start: 20130401, end: 20130401
  9. DEXAMETHASONE [Suspect]
     Indication: PLASMA CELL MYELOMA
     Route: 048
     Dates: start: 20130404, end: 20130404
  10. DEXAMETHASONE [Suspect]
     Indication: PLASMA CELL MYELOMA
     Route: 048
     Dates: start: 20130402, end: 20130402
  11. DEXAMETHASONE [Suspect]
     Indication: PLASMA CELL MYELOMA
     Route: 048
     Dates: start: 20130412, end: 20130412
  12. DEXAMETHASONE [Suspect]
     Indication: PLASMA CELL MYELOMA
     Route: 048
     Dates: start: 20130411, end: 20130411
  13. DEXAMETHASONE [Suspect]
     Indication: PLASMA CELL MYELOMA
     Route: 048
     Dates: start: 20130409, end: 20130409
  14. DEXAMETHASONE [Suspect]
     Indication: PLASMA CELL MYELOMA
     Route: 048
     Dates: start: 20130408, end: 20130408
  15. DEXAMETHASONE [Suspect]
     Indication: PLASMA CELL MYELOMA
     Route: 048
     Dates: start: 20130405, end: 20130405
  16. TAKEPRON [Concomitant]
     Indication: PROPHYLAXIS AGAINST GASTROINTESTINAL ULCER
     Route: 048
  17. ZOVIRAX [Concomitant]
     Indication: ANTIVIRAL PROPHYLAXIS
     Route: 048
  18. DIFLUCAN [Concomitant]
     Indication: INFECTION PROPHYLAXIS
     Route: 048
  19. BAKTAR [Concomitant]
     Indication: PROPHYLAXIS
     Route: 048
  20. BIO-THREE [Concomitant]
     Indication: DIARRHOEA
     Route: 048
  21. METHYCOBAL [Concomitant]
     Indication: NEUROPATHY PERIPHERAL
     Route: 048
  22. XYZAL [Concomitant]
     Route: 048
  23. AMLODIN OD [Concomitant]
     Indication: HYPERTENSION
     Route: 048
  24. FENTOS TAPE [Concomitant]
     Indication: BACK PAIN
     Route: 062
  25. OXYCODONE HYDROCHLORIDE HYDRATE [Concomitant]
     Indication: BACK PAIN
     Dosage: AS NEEDED
     Route: 048
  26. PANTOSIN [Concomitant]
     Indication: CONSTIPATION
     Route: 048
  27. LENDORMIN D [Concomitant]
     Indication: INSOMNIA
     Route: 048
  28. SODIUM CHLORIDE 10% [Concomitant]
     Indication: DECREASED APPETITE
     Route: 042
     Dates: start: 20130418
  29. BFLUID [Concomitant]
     Indication: DECREASED APPETITE
     Route: 042
     Dates: start: 20130416
  30. DOXORUBICIN HYDROCHLORIDE [Concomitant]
     Indication: PLASMA CELL MYELOMA
     Route: 065
     Dates: start: 20130502

REACTIONS (3)
  - Plasma cell myeloma [Fatal]
  - Nerve compression [Unknown]
  - Off label use [Not Recovered/Not Resolved]
